FAERS Safety Report 5220480-1 (Version None)
Quarter: 2007Q1

REPORT INFORMATION
  Report Type: 
  Country: None (occurrence: None)
  Receive Date: 20070125
  Receipt Date: 20070125
  Transmission Date: 20070707
  Serious: Yes (Hospitalization)
  Sender: FDA-Public Use
  Company Number: None

PATIENT
  Age: 65 Year
  Sex: Male

DRUGS (6)
  1. COREG [Suspect]
     Dosage: 3.125 MG PO BID
     Route: 048
  2. ALTACE [Suspect]
     Dosage: 2.5 MG PO QD
     Route: 048
  3. METFORMIN HCL [Concomitant]
  4. ASPIRIN [Concomitant]
  5. ZOLOFT [Concomitant]
  6. AMARYL [Concomitant]

REACTIONS (3)
  - BLOOD PRESSURE DECREASED [None]
  - PRESYNCOPE [None]
  - VERTIGO [None]
